FAERS Safety Report 9881269 (Version 1)
Quarter: 2014Q1

REPORT INFORMATION
  Report Type: Spontaneous
  Country: DE (occurrence: DE)
  Receive Date: 20140207
  Receipt Date: 20140207
  Transmission Date: 20141002
  Serious: Yes (Hospitalization)
  Sender: FDA-Public Use
  Company Number: DE-SA-2014SA012584

PATIENT
  Age: 68 Year
  Sex: Male
  Weight: 60 kg

DRUGS (9)
  1. PENTOXIFYLLINE [Suspect]
     Indication: INTERMITTENT CLAUDICATION
     Dosage: 5 TIMES WEEKLY
     Route: 042
     Dates: start: 20090701, end: 20090716
  2. LANTUS [Suspect]
     Indication: TYPE 2 DIABETES MELLITUS
     Route: 058
     Dates: start: 2005, end: 20090706
  3. LANTUS [Suspect]
     Indication: TYPE 2 DIABETES MELLITUS
     Route: 058
     Dates: start: 20090707
  4. ASS [Concomitant]
     Indication: PERIPHERAL ARTERIAL OCCLUSIVE DISEASE
     Route: 048
     Dates: start: 200401
  5. HYPROMELLOSE [Concomitant]
     Route: 047
  6. INSULIN HUMAN ISOPHANE [Concomitant]
     Indication: TYPE 2 DIABETES MELLITUS
     Route: 058
     Dates: start: 200810
  7. NEXIUM [Concomitant]
     Indication: DUODENAL ULCER
     Route: 048
     Dates: start: 200401
  8. PANKREATIN [Concomitant]
     Indication: PANCREATIC INSUFFICIENCY
     Route: 048
     Dates: start: 2000
  9. PLAVIX [Concomitant]
     Indication: PERIPHERAL ARTERIAL OCCLUSIVE DISEASE
     Route: 048
     Dates: start: 200401

REACTIONS (1)
  - Labyrinthine fistula [Recovered/Resolved]
